FAERS Safety Report 9447592 (Version 2)
Quarter: 2013Q4

REPORT INFORMATION
  Report Type: Spontaneous
  Country: FR (occurrence: FR)
  Receive Date: 20130808
  Receipt Date: 20131212
  Transmission Date: 20140711
  Serious: Yes (Life-Threatening, Hospitalization, Other)
  Sender: FDA-Public Use
  Company Number: FR-ASTRAZENECA-2013SE61219

PATIENT
  Age: 22402 Day
  Sex: Male

DRUGS (9)
  1. INEXIUM [Suspect]
     Indication: ABDOMINAL PAIN UPPER
     Route: 048
     Dates: start: 20130220
  2. XELODA [Suspect]
     Indication: RECTAL ADENOCARCINOMA
     Dosage: 150 MG SIX TIMES A DAY FOR ONE MONTH AND THEN 500 MG FOUR TIMES A DAY FOR ONE MONTH
     Route: 048
     Dates: start: 201304, end: 20130712
  3. XELODA [Suspect]
     Indication: RECTAL ADENOCARCINOMA
     Route: 048
     Dates: start: 20130716, end: 20130722
  4. ELOXATINE [Suspect]
     Indication: RECTAL ADENOCARCINOMA
     Route: 048
     Dates: start: 20130419, end: 20130625
  5. KARDEGIC [Suspect]
     Route: 048
     Dates: start: 20130226
  6. DOMPERIDONE ARROW [Suspect]
     Indication: NAUSEA
     Route: 048
     Dates: start: 20130423
  7. CONTRAMAL [Suspect]
     Indication: ABDOMINAL PAIN
     Route: 048
     Dates: start: 20130221, end: 20130722
  8. PHLOROGLUCINOL ARROW [Suspect]
     Indication: ABDOMINAL PAIN
     Route: 048
     Dates: start: 20130703
  9. XATRAL [Suspect]
     Indication: BENIGN PROSTATIC HYPERPLASIA
     Dosage: 10 MG SR EVERY DAY
     Route: 048
     Dates: start: 20130219

REACTIONS (10)
  - Pancreatitis acute [Recovered/Resolved]
  - Metabolic acidosis [Unknown]
  - Hypothermia [Unknown]
  - Renal failure acute [Not Recovered/Not Resolved]
  - Bronchopneumonia [Unknown]
  - Hyperlipasaemia [Unknown]
  - Septic shock [Unknown]
  - Dehydration [Unknown]
  - Diarrhoea [Unknown]
  - Nausea [Unknown]
